FAERS Safety Report 25859421 (Version 1)
Quarter: 2025Q3

REPORT INFORMATION
  Report Type: Report from Study
  Country: CA (occurrence: CA)
  Receive Date: 20250929
  Receipt Date: 20250929
  Transmission Date: 20251020
  Serious: Yes (Other)
  Sender: NOVARTIS
  Company Number: CA-002147023-NVSC2025CA144321

PATIENT
  Age: 41 Year
  Sex: Female

DRUGS (1)
  1. KISQALI [Suspect]
     Active Substance: RIBOCICLIB SUCCINATE
     Indication: Breast cancer
     Dosage: 400 MG, QD
     Route: 048
     Dates: start: 20250716

REACTIONS (6)
  - Leukoplakia oral [Unknown]
  - Headache [Not Recovered/Not Resolved]
  - Back pain [Not Recovered/Not Resolved]
  - Neck pain [Not Recovered/Not Resolved]
  - Dizziness [Unknown]
  - Myalgia [Unknown]

NARRATIVE: CASE EVENT DATE: 20250912
